FAERS Safety Report 10449713 (Version 1)
Quarter: 2014Q3

REPORT INFORMATION
  Report Type: Spontaneous
  Country: US (occurrence: None)
  Receive Date: 20140911
  Receipt Date: 20140911
  Transmission Date: 20150326
  Serious: Yes (Life-Threatening, Hospitalization, Disabling)
  Sender: FDA-Public Use
  Company Number: None

PATIENT
  Age: 44 Year
  Sex: Male
  Weight: 72.58 kg

DRUGS (1)
  1. ACCUTANE [Suspect]
     Active Substance: ISOTRETINOIN
     Indication: ACNE

REACTIONS (14)
  - Poisoning [None]
  - Depression [None]
  - Mental impairment [None]
  - Facial nerve disorder [None]
  - Migraine [None]
  - Headache [None]
  - Bipolar disorder [None]
  - Muscle disorder [None]
  - Anxiety [None]
  - Head injury [None]
  - Suicidal ideation [None]
  - Burning sensation [None]
  - Pain [None]
  - Impaired work ability [None]

NARRATIVE: CASE EVENT DATE: 20140818
